FAERS Safety Report 21748846 (Version 1)
Quarter: 2022Q4

REPORT INFORMATION
  Report Type: Spontaneous
  Country: CN (occurrence: CN)
  Receive Date: 20221219
  Receipt Date: 20221219
  Transmission Date: 20230113
  Serious: Yes (Other)
  Sender: FDA-Public Use
  Company Number: CN-BAYER-2022A171181

PATIENT
  Age: 90 Year
  Sex: Male
  Weight: 43 kg

DRUGS (1)
  1. CIPROFLOXACIN [Suspect]
     Active Substance: CIPROFLOXACIN
     Indication: Enterobacter pneumonia
     Dosage: 0.2 G, BID
     Route: 041
     Dates: start: 20221204, end: 20221206

REACTIONS (4)
  - Dysphoria [Recovering/Resolving]
  - Mental disorder [Recovering/Resolving]
  - Underdose [None]
  - Prescribed underdose [None]

NARRATIVE: CASE EVENT DATE: 20221204
